FAERS Safety Report 14999662 (Version 1)
Quarter: 2018Q2

REPORT INFORMATION
  Report Type: Spontaneous
  Country: US (occurrence: US)
  Receive Date: 20180523
  Receipt Date: 20180523
  Transmission Date: 20180711
  Serious: Yes (Other)
  Sender: FDA-Public Use
  Company Number: None

PATIENT
  Sex: Male
  Weight: 90 kg

DRUGS (22)
  1. ALPRAZOLAM. [Concomitant]
     Active Substance: ALPRAZOLAM
  2. FUROSEMIDE. [Concomitant]
     Active Substance: FUROSEMIDE
  3. GLIPIZIDE. [Concomitant]
     Active Substance: GLIPIZIDE
  4. KETOTIFEN [Concomitant]
     Active Substance: KETOTIFEN
  5. LISINOPRIL. [Concomitant]
     Active Substance: LISINOPRIL
  6. TAMSULOSIN [Concomitant]
     Active Substance: TAMSULOSIN
  7. BUSPIRONE [Concomitant]
     Active Substance: BUSPIRONE HYDROCHLORIDE
  8. LATANOPROST. [Concomitant]
     Active Substance: LATANOPROST
  9. METOPROLOL TARTRATE. [Concomitant]
     Active Substance: METOPROLOL TARTRATE
  10. JANUVIA [Concomitant]
     Active Substance: SITAGLIPTIN PHOSPHATE
  11. ZYTIGA [Suspect]
     Active Substance: ABIRATERONE ACETATE
     Indication: PROSTATE CANCER
     Route: 048
     Dates: start: 20180223
  12. METOLAZONE. [Concomitant]
     Active Substance: METOLAZONE
  13. PREDNISONE. [Concomitant]
     Active Substance: PREDNISONE
  14. BASAGLAR [Concomitant]
     Active Substance: INSULIN GLARGINE
  15. CLONIDINE. [Concomitant]
     Active Substance: CLONIDINE
  16. DILTIAZEM. [Concomitant]
     Active Substance: DILTIAZEM
  17. ASPIRIN LOW DOSE [Concomitant]
     Active Substance: ASPIRIN
  18. FAMOTIDINE. [Concomitant]
     Active Substance: FAMOTIDINE
  19. LANTUS [Concomitant]
     Active Substance: INSULIN GLARGINE
  20. LOVASTATIN. [Concomitant]
     Active Substance: LOVASTATIN
  21. SINGULAIR [Concomitant]
     Active Substance: MONTELUKAST SODIUM
  22. TERAZOSIN [Concomitant]
     Active Substance: TERAZOSIN\TERAZOSIN HYDROCHLORIDE

REACTIONS (1)
  - Disease progression [None]
